FAERS Safety Report 21606774 (Version 1)
Quarter: 2022Q4

REPORT INFORMATION
  Report Type: Report from Study
  Country: BR (occurrence: BR)
  Receive Date: 20221117
  Receipt Date: 20221117
  Transmission Date: 20230112
  Serious: Yes (Other)
  Sender: FDA-Public Use
  Company Number: BR-CELLTRION INC.-2022BR019395

PATIENT

DRUGS (9)
  1. TRUXIMA [Suspect]
     Active Substance: RITUXIMAB-ABBS
     Indication: Systemic lupus erythematosus
     Dosage: UNK
     Route: 042
  2. INFLIXIMAB [Suspect]
     Active Substance: INFLIXIMAB
     Indication: Systemic lupus erythematosus
  3. ENALAPRIL [Concomitant]
     Active Substance: ENALAPRIL
     Indication: Hypertension
     Dosage: 2 CAPSULES A DAY
     Route: 048
     Dates: start: 2017
  4. HYDROCHLOROTHIAZIDE [Concomitant]
     Active Substance: HYDROCHLOROTHIAZIDE
     Indication: Hypertension
     Dosage: 1 CAPSULE A DAY
     Route: 048
     Dates: start: 2017
  5. SPIRONOLACTONE [Concomitant]
     Active Substance: SPIRONOLACTONE
     Indication: Hypertension
     Dosage: 2 CAPSULE MORNING
     Route: 048
     Dates: start: 2017
  6. PREDNISONA- [Concomitant]
     Indication: Product used for unknown indication
     Dosage: 2 CAPSULES A DAY
     Route: 048
     Dates: start: 2017
  7. SERTRALINE [Concomitant]
     Active Substance: SERTRALINE HYDROCHLORIDE
     Indication: Depression
     Dosage: 2 CAPSULE MORNING
     Route: 048
     Dates: start: 2017
  8. FLUOXETINE [Concomitant]
     Active Substance: FLUOXETINE HYDROCHLORIDE
     Indication: Depression
     Dosage: 1 CAPSULE A DAY
     Route: 048
     Dates: start: 2017
  9. SIMVASTATIN [Concomitant]
     Active Substance: SIMVASTATIN
     Indication: Hypertension
     Dosage: 1 CAPSULE NIGHT
     Route: 048
     Dates: start: 2017

REACTIONS (2)
  - Systemic lupus erythematosus [Unknown]
  - Off label use [Unknown]
